FAERS Safety Report 7255698-X (Version None)
Quarter: 2011Q1

REPORT INFORMATION
  Report Type: 
  Country: None (occurrence: None)
  Receive Date: 20110129
  Receipt Date: 20100819
  Transmission Date: 20110831
  Serious: No
  Sender: FDA-Public Use
  Company Number: US-ABBOTT-10P-163-0664941-00

PATIENT
  Sex: Female

DRUGS (18)
  1. NEXIUM [Concomitant]
     Indication: GASTROOESOPHAGEAL REFLUX DISEASE
     Dosage: 1 DAILY
  2. PERCOCET [Concomitant]
     Indication: PRODUCT USED FOR UNKNOWN INDICATION
     Dosage: 10-325MG, 1-3 EVERY 4 HRS AS NEEDED
  3. FLOVENT [Concomitant]
     Indication: PRODUCT USED FOR UNKNOWN INDICATION
     Dosage: DAILY IN THE MORNING
  4. HUMIRA [Suspect]
     Route: 058
  5. IRON PILL OTC [Concomitant]
     Indication: ANAEMIA
  6. HUMIRA [Suspect]
     Dosage: STARTED DAY 29
     Route: 058
     Dates: start: 20100902
  7. PHENERGAN [Concomitant]
     Indication: NAUSEA
  8. NASONEX [Concomitant]
     Indication: PRODUCT USED FOR UNKNOWN INDICATION
     Dosage: 2 PUFFS DAILY IN EACH NOSTRIL
  9. CELEXA [Concomitant]
     Indication: PRODUCT USED FOR UNKNOWN INDICATION
     Dosage: 20MG DAILY
  10. METHADONE [Concomitant]
     Indication: PRODUCT USED FOR UNKNOWN INDICATION
  11. ALLEGRA [Concomitant]
     Indication: SINUS DISORDER
     Dosage: 180MG DAILY
  12. ALBUTEROL [Concomitant]
     Indication: PRODUCT USED FOR UNKNOWN INDICATION
  13. CICLOPIROX + DESONIDE 0.5% CREAM [Concomitant]
     Indication: DERMATITIS
     Dosage: TO THE FACE
  14. KETOCONAZOLE [Concomitant]
     Indication: DERMATITIS
     Dosage: MEDICATED SHAMPOO
  15. HUMIRA [Suspect]
     Indication: CROHN'S DISEASE
     Dosage: PRE-FILLED SYRINGE
     Route: 058
     Dates: start: 20100805, end: 20100805
  16. PRENATAL PLUS [Concomitant]
     Indication: ANAEMIA
     Dosage: 1 TABLET DAILY
  17. HUMIRA [Suspect]
     Dosage: DAY 15
     Route: 058
     Dates: start: 20100819, end: 20100819
  18. ZANAFLEX [Concomitant]
     Indication: MUSCLE SPASMS
     Dosage: EVERY NIGHT

REACTIONS (1)
  - PRURITUS GENERALISED [None]
